FAERS Safety Report 12975732 (Version 2)
Quarter: 2016Q4

REPORT INFORMATION
  Report Type: Spontaneous
  Country: US (occurrence: US)
  Receive Date: 20161125
  Receipt Date: 20161209
  Transmission Date: 20170207
  Serious: No
  Sender: FDA-Public Use
  Company Number: US-TAKEDA-2016TUS021104

PATIENT
  Age: 52 Year
  Sex: Male
  Weight: 95.24 kg

DRUGS (5)
  1. VALIUM [Concomitant]
     Active Substance: DIAZEPAM
     Indication: AGITATION
     Dosage: 10 MG, UNK
     Route: 048
     Dates: start: 2014
  2. GABAPENTIN. [Concomitant]
     Active Substance: GABAPENTIN
     Indication: ANXIETY
     Dosage: UNK
     Route: 048
     Dates: start: 2015
  3. TRINTELLIX [Suspect]
     Active Substance: VORTIOXETINE HYDROBROMIDE
     Indication: DEPRESSION
     Dosage: 10 MG, QD
     Route: 048
     Dates: start: 20161013, end: 20161016
  4. ZYPREXA [Concomitant]
     Active Substance: OLANZAPINE
     Indication: AGITATION
     Dosage: UNK UNK, QOD
     Route: 048
     Dates: start: 2014
  5. CELEXA [Concomitant]
     Active Substance: CITALOPRAM HYDROBROMIDE
     Indication: DEPRESSION
     Dosage: 10 MG, UNK
     Dates: start: 2014

REACTIONS (2)
  - Feeling abnormal [Recovered/Resolved]
  - Therapy cessation [Recovered/Resolved]

NARRATIVE: CASE EVENT DATE: 201610
